FAERS Safety Report 8536898-5 (Version None)
Quarter: 2012Q3

REPORT INFORMATION
  Report Type: 
  Country: None (occurrence: None)
  Receive Date: 20120725
  Receipt Date: 20120716
  Transmission Date: 20120928
  Serious: Yes (Other)
  Sender: FDA-Public Use
  Company Number: CH-TEVA-336101ISR

PATIENT
  Age: 57 Year
  Sex: Female

DRUGS (5)
  1. VENLAFAXINE-MEPHA ER 75 MG [Suspect]
     Indication: DEPRESSION
     Dosage: 37.5 MILLIGRAM;
     Route: 048
     Dates: start: 20110708
  2. TEMESTA EXPIDET 1MG [Concomitant]
  3. VENLAFAXINE-MEPHA ER 75 MG [Suspect]
     Dosage: 150 MILLIGRAM;
     Route: 048
  4. ANTIHYPERTENSIVE DRUG [Concomitant]
     Indication: HYPERTENSION
  5. VENLAFAXINE-MEPHA ER 75 MG [Suspect]
     Dosage: 75 MILLIGRAM;
     Route: 048

REACTIONS (1)
  - RETINAL DETACHMENT [None]
